FAERS Safety Report 7291096-0 (Version None)
Quarter: 2011Q1

REPORT INFORMATION
  Report Type: 
  Country: None (occurrence: None)
  Receive Date: 20110214
  Receipt Date: 20110203
  Transmission Date: 20110831
  Serious: Yes (Other)
  Sender: FDA-Public Use
  Company Number: US-JNJFOC-20101102528

PATIENT
  Sex: Female
  Weight: 77.11 kg

DRUGS (9)
  1. DIOVAN [Concomitant]
     Indication: HYPERTENSION
     Route: 048
  2. REMICADE [Suspect]
     Indication: RHEUMATOID ARTHRITIS
     Route: 042
  3. REMICADE [Suspect]
     Route: 042
  4. PREMARIN [Concomitant]
     Dosage: 1/2 OF APPLICATOR (1.25 MG PER APPLICATOR)
     Route: 067
  5. PLAQUENIL [Concomitant]
     Indication: RHEUMATOID ARTHRITIS
     Route: 048
  6. CLARITIN [Concomitant]
     Indication: PREMEDICATION
     Route: 060
  7. PREDNISONE [Concomitant]
     Indication: RHEUMATOID ARTHRITIS
     Dosage: ONE 10 MG. TABLET + THREE 1MG. TABLETS
     Route: 048
  8. TRAMADOL [Concomitant]
     Indication: PAIN
     Route: 065
  9. ESTROPIPATE [Concomitant]
     Indication: HORMONE THERAPY
     Route: 048

REACTIONS (7)
  - FEELING ABNORMAL [None]
  - CHEST DISCOMFORT [None]
  - DRUG HYPERSENSITIVITY [None]
  - INFUSION RELATED REACTION [None]
  - HYPERTENSION [None]
  - NAUSEA [None]
  - CHOKING [None]
